FAERS Safety Report 5137422-X (Version None)
Quarter: 2006Q4

REPORT INFORMATION
  Report Type: 
  Country: None (occurrence: None)
  Receive Date: 20061030
  Receipt Date: 20051101
  Transmission Date: 20070319
  Serious: No
  Sender: FDA-Public Use
  Company Number: US-GLAXOSMITHKLINE-A0580473A

PATIENT
  Age: 59 Year
  Sex: Female

DRUGS (13)
  1. ADVAIR HFA [Suspect]
     Indication: CHRONIC OBSTRUCTIVE PULMONARY DISEASE
     Dosage: 1PUFF TWICE PER DAY
     Route: 055
     Dates: end: 20050915
  2. FLONASE [Concomitant]
  3. ASTELIN [Concomitant]
  4. ALBUTEROL [Concomitant]
  5. ADVAIR HFA [Concomitant]
  6. HYZAAR [Concomitant]
  7. ZETIA [Concomitant]
  8. ZYRTEC [Concomitant]
  9. OMEPRAZOLE [Concomitant]
  10. FOSAMAX [Concomitant]
  11. CALTRATE [Concomitant]
  12. ATROVENT [Concomitant]
  13. OSCAL [Concomitant]

REACTIONS (1)
  - ORAL FUNGAL INFECTION [None]
